FAERS Safety Report 5534603-8 (Version None)
Quarter: 2007Q4

REPORT INFORMATION
  Report Type: 
  Country: None (occurrence: None)
  Receive Date: 20071204
  Receipt Date: 20071204
  Transmission Date: 20080405
  Serious: Yes (Other)
  Sender: FDA-Public Use
  Company Number: None

PATIENT
  Age: 4 Year
  Sex: Male
  Weight: 16.7831 kg

DRUGS (1)
  1. TAMIFLU [Suspect]
     Indication: INFLUENZA
     Dosage: 3.75 ML 2X DAILY PO
     Route: 048
     Dates: start: 20071028, end: 20071029

REACTIONS (6)
  - BODY TEMPERATURE DECREASED [None]
  - COLD SWEAT [None]
  - DELIRIUM [None]
  - HYPERHIDROSIS [None]
  - TREMOR [None]
  - UNRESPONSIVE TO STIMULI [None]
